FAERS Safety Report 9564473 (Version 2)
Quarter: 2014Q1

REPORT INFORMATION
  Report Type: Spontaneous
  Country: US (occurrence: US)
  Receive Date: 20130930
  Receipt Date: 20140312
  Transmission Date: 20141002
  Serious: Yes (Death, Other)
  Sender: FDA-Public Use
  Company Number: US-JNJFOC-20130915826

PATIENT
  Age: 23 Year
  Sex: Female

DRUGS (3)
  1. XARELTO [Suspect]
     Indication: DEEP VEIN THROMBOSIS
     Route: 048
  2. WARFARIN [Suspect]
     Indication: DEEP VEIN THROMBOSIS
     Route: 065
  3. WARFARIN [Suspect]
     Indication: DEEP VEIN THROMBOSIS
     Route: 065

REACTIONS (5)
  - Death [Fatal]
  - International normalised ratio increased [Recovering/Resolving]
  - Coagulopathy [Unknown]
  - Hepatic enzyme increased [Unknown]
  - Adverse event [Unknown]
